FAERS Safety Report 20560713 (Version 1)
Quarter: 2022Q1

REPORT INFORMATION
  Report Type: Spontaneous
  Country: US (occurrence: US)
  Receive Date: 20220307
  Receipt Date: 20220307
  Transmission Date: 20220424
  Serious: Yes (Other)
  Sender: FDA-Public Use
  Company Number: ALC2022US001083

PATIENT
  Sex: Male

DRUGS (1)
  1. PATADAY ONCE DAILY RELIEF [Suspect]
     Active Substance: OLOPATADINE HYDROCHLORIDE
     Indication: Product used for unknown indication
     Dosage: 1 DRP, QD
     Route: 047

REACTIONS (5)
  - Blindness transient [Unknown]
  - Ocular discomfort [Unknown]
  - Eye irritation [Unknown]
  - Abdominal discomfort [Unknown]
  - Illness [Unknown]

NARRATIVE: CASE EVENT DATE: 20220223
